FAERS Safety Report 13674392 (Version 1)
Quarter: 2017Q2

REPORT INFORMATION
  Report Type: Spontaneous
  Country: US (occurrence: US)
  Receive Date: 20170621
  Receipt Date: 20170621
  Transmission Date: 20170830
  Serious: Yes (Other)
  Sender: FDA-Public Use
  Company Number: US-ACCORD-052877

PATIENT
  Age: 5 Decade
  Sex: Female

DRUGS (3)
  1. METHOTREXATE. [Suspect]
     Active Substance: METHOTREXATE
     Indication: ORAL LICHEN PLANUS
  2. MYCOPHENOLIC ACID. [Suspect]
     Active Substance: MYCOPHENOLIC ACID
     Indication: ORAL LICHEN PLANUS
     Dosage: 2 G/D AFTER FAILING TO RESPOND TO A DOSAGE LESS THAN 2 G/D
  3. PREDNISONE. [Suspect]
     Active Substance: PREDNISONE
     Indication: ORAL LICHEN PLANUS
     Dosage: 30-40 MG/D FOR 5 YEARS?NOT BELOW 15 MG/D

REACTIONS (3)
  - Drug ineffective [Unknown]
  - Leukopenia [Unknown]
  - Off label use [Unknown]
